FAERS Safety Report 26064116 (Version 1)
Quarter: 2025Q4

REPORT INFORMATION
  Report Type: Spontaneous
  Country: GB (occurrence: GB)
  Receive Date: 20251119
  Receipt Date: 20251119
  Transmission Date: 20260118
  Serious: Yes (Other)
  Sender: BAYER HEALTHCARE PHARMACEUTICALS INC.
  Company Number: None

PATIENT
  Age: 58 Year
  Sex: Male
  Weight: 122 kg

DRUGS (1)
  1. CIPROFLOXACIN [Suspect]
     Active Substance: CIPROFLOXACIN
     Indication: Hair transplant
     Dosage: 100 MG ONCE PER DAY
     Dates: start: 20251017, end: 20251022

REACTIONS (13)
  - Palpitations [Not Recovered/Not Resolved]
  - Anxiety [Not Recovered/Not Resolved]
  - Poor quality sleep [Not Recovered/Not Resolved]
  - Heart rate increased [Not Recovered/Not Resolved]
  - Headache [None]
  - Depressed mood [None]
  - Hypoaesthesia [None]
  - Muscular weakness [None]
  - Gait disturbance [None]
  - Fatigue [None]
  - Depression [None]
  - Memory impairment [None]
  - Product use in unapproved indication [None]

NARRATIVE: CASE EVENT DATE: 20251019
